FAERS Safety Report 6596502-2 (Version None)
Quarter: 2010Q1

REPORT INFORMATION
  Report Type: 
  Country: None (occurrence: None)
  Receive Date: 20100223
  Receipt Date: 20100217
  Transmission Date: 20100710
  Serious: Yes (Death, Hospitalization)
  Sender: FDA-Public Use
  Company Number: JP-ROCHE-661890

PATIENT
  Sex: Female

DRUGS (2)
  1. TOCILIZUMAB [Suspect]
     Indication: RHEUMATOID ARTHRITIS
     Dosage: FORM: INJECTION
     Route: 041
     Dates: start: 20090914, end: 20090914
  2. LASIX [Concomitant]
     Dosage: FORM: INJECTION
     Route: 042
     Dates: start: 20090912, end: 20091001

REACTIONS (2)
  - PYELONEPHRITIS [None]
  - RENAL FAILURE [None]
